FAERS Safety Report 8967773 (Version 1)
Quarter: 2012Q4

REPORT INFORMATION
  Report Type: Spontaneous
  Country: GB (occurrence: None)
  Receive Date: 20121210
  Receipt Date: 20121210
  Transmission Date: 20130627
  Serious: Yes (Hospitalization)
  Sender: FDA-Public Use
  Company Number: DSA_61294_2012

PATIENT
  Age: 66 Year
  Sex: Female

DRUGS (19)
  1. 5-FU [Suspect]
     Indication: COLORECTAL CANCER METASTATIC
     Route: 040
     Dates: start: 20120823, end: 20120823
  2. 5-FU [Suspect]
     Indication: COLORECTAL CANCER METASTATIC
     Route: 041
     Dates: start: 20120823, end: 20120823
  3. 5-FU [Suspect]
     Indication: COLORECTAL CANCER METASTATIC
     Route: 041
     Dates: start: 20120823, end: 20120823
  4. 5-FU [Suspect]
     Indication: COLORECTAL CANCER METASTATIC
     Route: 040
     Dates: start: 20121112, end: 20121112
  5. AFLIBERCEPT [Suspect]
     Indication: COLORECTAL CANCER METASTATIC
     Route: 042
     Dates: start: 20120823, end: 20120823
  6. AFLIBERCEPT [Suspect]
     Indication: COLORECTAL CANCER METASTATIC
     Route: 042
     Dates: start: 20121112, end: 20121112
  7. IRINOTECAN [Suspect]
     Indication: COLORECTAL CANCER METASTATIC
     Route: 042
     Dates: start: 20120823, end: 20120823
  8. IRINOTECAN [Suspect]
     Indication: COLORECTAL CANCER METASTATIC
     Route: 042
     Dates: start: 20121112, end: 20121112
  9. LEUCOVORIN [Suspect]
     Indication: COLORECTAL CANCER METASTATIC
     Route: 042
     Dates: start: 20120823, end: 20120823
  10. LEUCOVORIN [Suspect]
     Indication: COLORECTAL CANCER METASTATIC
     Route: 042
     Dates: start: 20121112, end: 20121112
  11. RANITIDINE [Concomitant]
  12. ANTIHISTAMINES [Concomitant]
  13. LEVOMEPROMAZINE [Concomitant]
  14. OPIODS [Concomitant]
  15. ANTIBIOTICS [Concomitant]
  16. ANTIINFECTIVES [Concomitant]
  17. DIFFLAM [Concomitant]
  18. LOPERAMIDE [Concomitant]
  19. G-CSF [Concomitant]

REACTIONS (1)
  - Sepsis [None]
